FAERS Safety Report 24211383 (Version 1)
Quarter: 2024Q3

REPORT INFORMATION
  Report Type: Spontaneous
  Country: CA (occurrence: CA)
  Receive Date: 20240814
  Receipt Date: 20240814
  Transmission Date: 20241017
  Serious: Yes (Death, Other)
  Sender: ELI LILLY AND CO
  Company Number: CA-ELI_LILLY_AND_COMPANY-CA202408005296

PATIENT
  Age: 53 Year
  Sex: Female

DRUGS (2)
  1. HUMALOG [Suspect]
     Active Substance: INSULIN LISPRO
     Indication: Diabetes mellitus
     Dosage: UNK UNK, UNKNOWN
     Route: 065
  2. LANTUS [Concomitant]
     Active Substance: INSULIN GLARGINE
     Indication: Diabetes mellitus

REACTIONS (3)
  - Cerebrovascular accident [Fatal]
  - Diabetic complication [Fatal]
  - Diabetic nephropathy [Unknown]
